FAERS Safety Report 10592686 (Version 1)
Quarter: 2014Q4

REPORT INFORMATION
  Report Type: Spontaneous
  Country: US (occurrence: None)
  Receive Date: 20141118
  Receipt Date: 20141118
  Transmission Date: 20150529
  Serious: Yes (Death)
  Sender: FDA-Public Use
  Company Number: None

PATIENT
  Age: 14 Year
  Sex: Female
  Weight: 55.7 kg

DRUGS (6)
  1. VINCRISTINE SULFATE. [Suspect]
     Active Substance: VINCRISTINE SULFATE
     Dosage: PER RELAPSE INDUCTION THERAPY AALL0433; PRESUMED PATIENT DID NOT RECEIVE DAY 22 DOSE?
     Dates: end: 20141028
  2. CYTARABINE. [Suspect]
     Active Substance: CYTARABINE
     Dosage: PER RELAPSE INDUCTION OFF PROTOCOL AALL0433?
     Dates: end: 20141014
  3. METHOTREXATE [Suspect]
     Active Substance: METHOTREXATE
     Dosage: PER RELAPSE INDUCTION OFF PROFOCOL AALL0433; PATIENT RECEIVED DAY 15 IT MTX ONLY PRIOR TO EVENT?
     Dates: end: 20141028
  4. DOXORUBICIN HYDROCHLORIDE. [Suspect]
     Active Substance: DOXORUBICIN HYDROCHLORIDE
     Dosage: PER RELAPSE INDUCTION THERAPY OFF PROTOCOL AALL0433
     Dates: end: 20141014
  5. PREDNISONE. [Suspect]
     Active Substance: PREDNISONE
     Dosage: PER RELAPSE INDUCTION OFF PROTOCOL AALL0433; UNCLEAR AS TO EXACT END DATE, NEED MORE INFORMATION FROM INSTITUTION PATIENT TRANSFERRED TO ?
     Dates: end: 20141105
  6. ONCASPAR [Suspect]
     Active Substance: PEGASPARGASE
     Dosage: PER RELAPSE INDUCTION OFF PROTOCOL AALL 0433; PATIENT RECEIVED 1ST DOSE ONLY AS ASPARAGINE LEVELS WERE BEING MONITORED AND CONTINUED TO BE THERAPEUTIC PER U OF M
     Dates: end: 20141014

REACTIONS (11)
  - Vomiting [None]
  - Asthenia [None]
  - Acidosis [None]
  - Dehydration [None]
  - Nasopharyngitis [None]
  - Decreased appetite [None]
  - Diarrhoea [None]
  - Pyrexia [None]
  - Coagulopathy [None]
  - Hypotension [None]
  - Multi-organ failure [None]

NARRATIVE: CASE EVENT DATE: 20141107
